FAERS Safety Report 10185462 (Version 1)
Quarter: 2014Q2

REPORT INFORMATION
  Report Type: Spontaneous
  Country: AR (occurrence: AR)
  Receive Date: 20140521
  Receipt Date: 20140521
  Transmission Date: 20141212
  Serious: Yes (Hospitalization)
  Sender: FDA-Public Use
  Company Number: AR-009507513-1405ARG007325

PATIENT
  Age: 65 Year
  Sex: Male

DRUGS (3)
  1. PEGINTRON [Suspect]
     Indication: CHRONIC HEPATITIS C
     Dosage: UNK, WEEKLY
     Route: 058
     Dates: end: 20140508
  2. VICTRELIS [Suspect]
     Indication: CHRONIC HEPATITIS C
     Dosage: UNK, DAILY
     Route: 048
     Dates: end: 20140508
  3. REBETOL [Suspect]
     Indication: CHRONIC HEPATITIS C
     Dosage: UNK, DAILY
     Route: 048
     Dates: end: 20140508

REACTIONS (3)
  - Enteritis [Unknown]
  - Diarrhoea [Unknown]
  - Faeces discoloured [Unknown]
